FAERS Safety Report 13961896 (Version 1)
Quarter: 2017Q3

REPORT INFORMATION
  Report Type: Spontaneous
  Country: US (occurrence: US)
  Receive Date: 20170912
  Receipt Date: 20170912
  Transmission Date: 20171128
  Serious: Yes (Other)
  Sender: FDA-Public Use
  Company Number: US-ELI_LILLY_AND_COMPANY-US201709002657

PATIENT
  Age: 54 Year
  Sex: Female

DRUGS (9)
  1. TRULICITY [Suspect]
     Active Substance: DULAGLUTIDE
     Indication: PRODUCT USED FOR UNKNOWN INDICATION
     Dosage: UNK, UNKNOWN
     Route: 065
  2. HUMULIN R [Suspect]
     Active Substance: INSULIN HUMAN
     Indication: PRODUCT USED FOR UNKNOWN INDICATION
     Dosage: 125 U, EACH MORNING
     Route: 058
     Dates: start: 2015, end: 20170904
  3. METFORMIN [Concomitant]
     Active Substance: METFORMIN HYDROCHLORIDE
     Indication: PRODUCT USED FOR UNKNOWN INDICATION
     Dosage: 500 MG, BID
     Route: 065
  4. HUMULIN R [Suspect]
     Active Substance: INSULIN HUMAN
     Dosage: 125 U, EACH EVENING
     Route: 058
     Dates: start: 2015
  5. HUMULIN R U-500 [Suspect]
     Active Substance: INSULIN HUMAN
     Dosage: 25 U, EACH EVENING
     Route: 058
     Dates: start: 20170904
  6. HUMULIN R [Suspect]
     Active Substance: INSULIN HUMAN
     Dosage: 125 U, EACH EVENING
     Route: 058
     Dates: start: 2015, end: 20170904
  7. HUMULIN R U-500 [Suspect]
     Active Substance: INSULIN HUMAN
     Indication: PRODUCT USED FOR UNKNOWN INDICATION
     Dosage: 25 U, EACH MORNING
     Route: 058
     Dates: start: 20170904
  8. HUMULIN R U-500 [Suspect]
     Active Substance: INSULIN HUMAN
     Dosage: 40 U, UNKNOWN
     Route: 058
     Dates: start: 20170904
  9. HUMULIN R [Suspect]
     Active Substance: INSULIN HUMAN
     Dosage: 125 U, EACH MORNING
     Route: 058
     Dates: start: 2015

REACTIONS (12)
  - Gastrointestinal inflammation [Recovering/Resolving]
  - Blood glucose increased [Not Recovered/Not Resolved]
  - Headache [Not Recovered/Not Resolved]
  - Diarrhoea [Recovered/Resolved]
  - Abdominal pain upper [Recovered/Resolved]
  - Cortisol increased [Unknown]
  - Expired product administered [Unknown]
  - Coeliac disease [Recovering/Resolving]
  - Hypoaesthesia [Recovered/Resolved]
  - Incorrect dose administered [Not Recovered/Not Resolved]
  - Adrenal neoplasm [Not Recovered/Not Resolved]
  - Gastrointestinal pain [Unknown]

NARRATIVE: CASE EVENT DATE: 20170904
